FAERS Safety Report 9557871 (Version 3)
Quarter: 2015Q4

REPORT INFORMATION
  Report Type: Report from Study
  Country: US (occurrence: US)
  Receive Date: 20130926
  Receipt Date: 20151019
  Transmission Date: 20160305
  Serious: Yes (Hospitalization, Other)
  Sender: FDA-Public Use
  Company Number: US-ROCHE-1278546

PATIENT
  Sex: Female
  Weight: 61.45 kg

DRUGS (13)
  1. ARIMIDEX [Concomitant]
     Active Substance: ANASTROZOLE
  2. LEVAQUIN [Concomitant]
     Active Substance: LEVOFLOXACIN
  3. CEFTIN (UNITED STATES) [Concomitant]
  4. ADVAIR HFA [Concomitant]
     Active Substance: FLUTICASONE PROPIONATE\SALMETEROL XINAFOATE
  5. MORPHINE [Concomitant]
     Active Substance: MORPHINE
  6. SPIRIVA [Concomitant]
     Active Substance: TIOTROPIUM BROMIDE MONOHYDRATE
  7. HERCEPTIN [Suspect]
     Active Substance: TRASTUZUMAB
     Indication: BREAST CANCER METASTATIC
  8. ZOMETA [Concomitant]
     Active Substance: ZOLEDRONIC ACID
     Dosage: LAST DOSE ON  22/MAY/2012
     Route: 065
  9. ROCEPHIN [Suspect]
     Active Substance: CEFTRIAXONE SODIUM
     Indication: PRODUCT USED FOR UNKNOWN INDICATION
     Route: 065
  10. EXEMESTANE. [Concomitant]
     Active Substance: EXEMESTANE
  11. AUGMENTIN [Concomitant]
     Active Substance: AMOXICILLIN\CLAVULANATE POTASSIUM
  12. HERCEPTIN [Suspect]
     Active Substance: TRASTUZUMAB
     Indication: OESTROGEN RECEPTOR ASSAY POSITIVE
     Route: 065
  13. FASLODEX [Concomitant]
     Active Substance: FULVESTRANT

REACTIONS (9)
  - Respiratory failure [Unknown]
  - Disease progression [Not Recovered/Not Resolved]
  - Hiatus hernia [Unknown]
  - Cerebrovascular accident [Unknown]
  - Fatigue [Unknown]
  - Hypersensitivity [Unknown]
  - Bronchitis [Unknown]
  - Gastrooesophageal reflux disease [Recovered/Resolved]
  - Aspiration [Unknown]
